FAERS Safety Report 6332333-6 (Version None)
Quarter: 2009Q3

REPORT INFORMATION
  Report Type: 
  Country: None (occurrence: None)
  Receive Date: 20090828
  Receipt Date: 20090825
  Transmission Date: 20100115
  Serious: Yes (Other)
  Sender: FDA-Public Use
  Company Number: AU-BRISTOL-MYERS SQUIBB COMPANY-14752869

PATIENT
  Sex: Female

DRUGS (2)
  1. ABILIFY [Suspect]
  2. CONTRACEPTIVE [Suspect]
     Dosage: PILL
     Route: 048

REACTIONS (1)
  - LEUKOCYTOCLASTIC VASCULITIS [None]
